FAERS Safety Report 16824972 (Version 1)
Quarter: 2019Q3

REPORT INFORMATION
  Report Type: Spontaneous
  Country: IT (occurrence: IT)
  Receive Date: 20190919
  Receipt Date: 20190919
  Transmission Date: 20191005
  Serious: Yes (Other)
  Sender: FDA-Public Use
  Company Number: IT-AMGEN-ITASP2019151593

PATIENT
  Age: 70 Year
  Sex: Male

DRUGS (2)
  1. TOMUDEX [RALTITREXED DISODIUM] [Suspect]
     Active Substance: RALTITREXED DISODIUM
     Indication: PRODUCT USED FOR UNKNOWN INDICATION
     Dosage: UNK
     Route: 065
     Dates: start: 2019
  2. VECTIBIX [Suspect]
     Active Substance: PANITUMUMAB
     Indication: PRODUCT USED FOR UNKNOWN INDICATION
     Dosage: UNK
     Route: 065

REACTIONS (3)
  - Off label use [Unknown]
  - Carcinoembryonic antigen increased [Not Recovered/Not Resolved]
  - Skin toxicity [Unknown]

NARRATIVE: CASE EVENT DATE: 2019
